FAERS Safety Report 24837490 (Version 1)
Quarter: 2025Q1

REPORT INFORMATION
  Report Type: Spontaneous
  Country: IT (occurrence: IT)
  Receive Date: 20250113
  Receipt Date: 20250113
  Transmission Date: 20250409
  Serious: Yes (Other)
  Sender: PFIZER
  Company Number: IT-PFIZER INC-202500005505

PATIENT
  Age: 53 Year
  Sex: Male

DRUGS (1)
  1. TOFACITINIB CITRATE [Suspect]
     Active Substance: TOFACITINIB CITRATE
     Indication: Psoriatic arthropathy
     Dosage: 10 MG, 2X/DAY
     Dates: start: 202105

REACTIONS (3)
  - Muscle rupture [Unknown]
  - Pain in extremity [Unknown]
  - Muscle injury [Unknown]

NARRATIVE: CASE EVENT DATE: 20250101
